FAERS Safety Report 9464619 (Version 1)
Quarter: 2013Q3

REPORT INFORMATION
  Report Type: Spontaneous
  Country: US (occurrence: US)
  Receive Date: 20130819
  Receipt Date: 20130819
  Transmission Date: 20140515
  Serious: No
  Sender: FDA-Public Use
  Company Number: US-PFIZER INC-2013238155

PATIENT
  Age: 57 Year
  Sex: Female

DRUGS (5)
  1. XELJANZ [Suspect]
     Indication: RHEUMATOID ARTHRITIS
     Dosage: 5 MG, 2X/DAY
     Route: 048
     Dates: start: 201308
  2. XANAX [Concomitant]
     Dosage: 0.5 MG
  3. METHOTREXATE [Concomitant]
     Dosage: 2.5 MG
  4. LYRICA [Concomitant]
     Dosage: 100 MG
  5. PERCOCET [Concomitant]
     Dosage: 7.5-500

REACTIONS (2)
  - Abdominal pain upper [Unknown]
  - Headache [Unknown]
